FAERS Safety Report 22619447 (Version 1)
Quarter: 2023Q2

REPORT INFORMATION
  Report Type: Spontaneous
  Country: US (occurrence: US)
  Receive Date: 20230620
  Receipt Date: 20230620
  Transmission Date: 20230722
  Serious: Yes (Life-Threatening, Hospitalization, Other)
  Sender: FDA-Public Use
  Company Number: US-drreddys-SPO/USA/23/0167205

PATIENT
  Age: 62 Year
  Sex: Female

DRUGS (1)
  1. FENTANYL CITRATE [Suspect]
     Active Substance: FENTANYL CITRATE
     Indication: Flank pain
     Dosage: 20 ML WAS INJECTED IN 5 ML ALIQUOTS WITH INTERMITTENT PAUSES PROVIDING POSITIVE PRESSURE FEEDBACK. T
     Route: 029

REACTIONS (4)
  - Dizziness [Unknown]
  - Miosis [Unknown]
  - Malaise [Unknown]
  - Overdose [Unknown]
